FAERS Safety Report 5473977-3 (Version None)
Quarter: 2007Q3

REPORT INFORMATION
  Report Type: 
  Country: None (occurrence: None)
  Receive Date: 20070831
  Receipt Date: 20070315
  Transmission Date: 20080115
  Serious: Yes (Life-Threatening, Hospitalization)
  Sender: FDA-Public Use
  Company Number: US019623

PATIENT
  Age: 42 Year
  Sex: Male
  Weight: 77.3 kg

DRUGS (5)
  1. GABITRIL [Suspect]
     Indication: BIPOLAR DISORDER
     Dosage: 8 MG BID ORAL
     Route: 048
     Dates: start: 20050101, end: 20070201
  2. GABITRIL [Suspect]
     Indication: BIPOLAR DISORDER
     Dosage: 4 MG BID ORAL
     Route: 048
     Dates: start: 20070222
  3. EFFEXOR [Concomitant]
  4. LAMICTAL [Concomitant]
  5. CLONAZEPAM [Concomitant]

REACTIONS (1)
  - LOSS OF CONSCIOUSNESS [None]
